FAERS Safety Report 7043488-2 (Version None)
Quarter: 2010Q3

REPORT INFORMATION
  Report Type: 
  Country: None (occurrence: None)
  Receive Date: 20100929
  Receipt Date: 20100618
  Transmission Date: 20110219
  Serious: No
  Sender: FDA-Public Use
  Company Number: US-WYE-H16090810

PATIENT
  Age: 41 Year
  Sex: Female
  Weight: 72.64 kg

DRUGS (4)
  1. PRISTIQ [Suspect]
     Dosage: 50 MG 1X PER 1 DAY, ORAL
     Route: 048
     Dates: start: 20070101
  2. ABILIFY [Concomitant]
  3. LAMICATAL (LAMOTRIGINE) [Concomitant]
  4. RITALIN [Concomitant]

REACTIONS (1)
  - DRUG EXPOSURE DURING PREGNANCY [None]
